FAERS Safety Report 16403396 (Version 1)
Quarter: 2019Q2

REPORT INFORMATION
  Report Type: Report from Study
  Country: GB (occurrence: GB)
  Receive Date: 20190607
  Receipt Date: 20190607
  Transmission Date: 20190711
  Serious: Yes (Other)
  Sender: FDA-Public Use
  Company Number: GB-ROCHE-2330321

PATIENT
  Sex: Female
  Weight: 52.9 kg

DRUGS (15)
  1. OMEPRAZOLE. [Concomitant]
     Active Substance: OMEPRAZOLE
  2. MST CONTINUS [Concomitant]
     Active Substance: MORPHINE SULFATE
  3. ROACTEMRA [Suspect]
     Active Substance: TOCILIZUMAB
     Indication: RHEUMATOID ARTHRITIS
     Route: 058
     Dates: start: 20190218
  4. FOLIC ACID. [Concomitant]
     Active Substance: FOLIC ACID
  5. AMITRIPTYLINE [Concomitant]
     Active Substance: AMITRIPTYLINE
  6. HYDROXYCHLOROQUINE [Concomitant]
     Active Substance: HYDROXYCHLOROQUINE
  7. MIRTAZAPINE. [Concomitant]
     Active Substance: MIRTAZAPINE
  8. STEROIDS [Concomitant]
     Active Substance: UNSPECIFIED INGREDIENT
  9. METHOTREXATE. [Concomitant]
     Active Substance: METHOTREXATE
  10. MODULITE [Concomitant]
  11. GABAPENTIN. [Concomitant]
     Active Substance: GABAPENTIN
  12. MELOXICAM. [Concomitant]
     Active Substance: MELOXICAM
  13. PREDNISONE. [Concomitant]
     Active Substance: PREDNISONE
  14. SALBUTAMOL [Concomitant]
     Active Substance: ALBUTEROL
  15. PARACETAMOL [Concomitant]
     Active Substance: ACETAMINOPHEN

REACTIONS (6)
  - Body temperature increased [Unknown]
  - Malaise [Unknown]
  - Cough [Unknown]
  - Nasopharyngitis [Unknown]
  - Weight decreased [Unknown]
  - Immunodeficiency [Unknown]
